FAERS Safety Report 17426898 (Version 1)
Quarter: 2020Q1

REPORT INFORMATION
  Report Type: Spontaneous
  Country: NL (occurrence: NL)
  Receive Date: 20200217
  Receipt Date: 20200217
  Transmission Date: 20200409
  Serious: Yes (Other)
  Sender: FDA-Public Use
  Company Number: NL-MYLANLABS-2020M1016796

PATIENT
  Age: 53 Year
  Sex: Female

DRUGS (1)
  1. TRANEXAMIC ACID. [Suspect]
     Active Substance: TRANEXAMIC ACID
     Indication: PRODUCT USED FOR UNKNOWN INDICATION
     Dosage: UNK
     Route: 065

REACTIONS (11)
  - Impaired quality of life [Unknown]
  - Heart rate abnormal [Unknown]
  - PCO2 abnormal [Unknown]
  - Myoclonus [Unknown]
  - Spinal fracture [Unknown]
  - Haemodynamic instability [Unknown]
  - Back pain [Unknown]
  - Blood pressure abnormal [Unknown]
  - Wrong product administered [Unknown]
  - Muscular weakness [Unknown]
  - Pain [Unknown]
